FAERS Safety Report 6187961-8 (Version None)
Quarter: 2009Q2

REPORT INFORMATION
  Report Type: 
  Country: None (occurrence: None)
  Receive Date: 20090513
  Receipt Date: 20090506
  Transmission Date: 20091009
  Serious: Yes (Death, Hospitalization, Other)
  Sender: FDA-Public Use
  Company Number: US-ROCHE-613822

PATIENT
  Sex: Female
  Weight: 75.8 kg

DRUGS (7)
  1. CAPECITABINE [Suspect]
     Dosage: STRENGTH: 500 MG TABLET, 1000 MG AM AND 1000 MG PM
     Route: 048
     Dates: start: 20081212
  2. CAPECITABINE [Suspect]
     Dosage: STRENGTH: 500 MG AND 150 MG TABLETS
     Route: 048
  3. CAPECITABINE [Suspect]
     Dosage: 1500 MG IN AM AND 1000 MG IN PM.
     Route: 048
     Dates: start: 20090206
  4. FEMARA [Concomitant]
  5. LISINOPRIL [Concomitant]
  6. PLETAL [Concomitant]
  7. TOPROL-XL [Concomitant]

REACTIONS (3)
  - DEATH [None]
  - DIARRHOEA [None]
  - PROTHROMBIN TIME PROLONGED [None]
